FAERS Safety Report 7478920-3 (Version None)
Quarter: 2011Q2

REPORT INFORMATION
  Report Type: 
  Country: None (occurrence: None)
  Receive Date: 20110513
  Receipt Date: 20110505
  Transmission Date: 20111010
  Serious: Yes (Hospitalization)
  Sender: FDA-Public Use
  Company Number: US-US-EMD SERONO, INC.-7044989

PATIENT
  Sex: Female
  Weight: 123 kg

DRUGS (12)
  1. LANAFLEX [Concomitant]
     Dates: start: 20110124
  2. MEDROL [Concomitant]
     Dates: start: 20110107
  3. REBIF [Suspect]
     Route: 058
     Dates: start: 20110124, end: 20110201
  4. PROCHLORPERAZINE MALEATE [Concomitant]
     Route: 048
     Dates: start: 20100902
  5. PROPRANOLOL [Concomitant]
     Route: 048
     Dates: start: 20100902
  6. ASPIRIN [Concomitant]
     Dates: start: 20100902
  7. REBIF [Suspect]
     Indication: MULTIPLE SCLEROSIS
     Route: 058
     Dates: start: 20101229
  8. PROPRANOLOL [Concomitant]
     Route: 048
     Dates: start: 20110307
  9. TOPIRAMATE [Concomitant]
     Route: 048
     Dates: start: 20101130
  10. VITAMIN D [Concomitant]
     Route: 048
     Dates: start: 20101104
  11. ZANAFLEX [Concomitant]
     Indication: MIGRAINE
     Route: 048
     Dates: start: 20101101
  12. ANAPROX DS [Concomitant]
     Route: 048
     Dates: start: 20101004

REACTIONS (3)
  - DYSPNOEA [None]
  - TREMOR [None]
  - CONVULSION [None]
